FAERS Safety Report 19164930 (Version 2)
Quarter: 2021Q2

REPORT INFORMATION
  Report Type: Spontaneous
  Country: CA (occurrence: CA)
  Receive Date: 20210421
  Receipt Date: 20210505
  Transmission Date: 20210717
  Serious: Yes (Hospitalization, Congenital Anomaly)
  Sender: FDA-Public Use
  Company Number: CA-EISAI MEDICAL RESEARCH-EC-2021-091269

PATIENT
  Age: 8 Hour
  Weight: 2 kg

DRUGS (13)
  1. ESCITALOPRAM [Suspect]
     Active Substance: ESCITALOPRAM OXALATE
     Route: 064
  2. NORTRIPTYLINE [Suspect]
     Active Substance: NORTRIPTYLINE
     Indication: FOETAL EXPOSURE DURING PREGNANCY
     Dosage: DOSE AND FREQUENCY UNKNOWN
     Route: 064
  3. BENZATROPINE MESILATE [Suspect]
     Active Substance: BENZTROPINE
     Indication: FOETAL EXPOSURE DURING PREGNANCY
     Dosage: DOSE AND FREQUENCY UNKNOWN (BENZTROPINE MESYLATE ? GENERIC)
     Route: 064
  4. QUETIAPINE. [Suspect]
     Active Substance: QUETIAPINE
     Indication: FOETAL EXPOSURE DURING PREGNANCY
     Dosage: DOSE AND FREQUENCY UNKNOWN
     Route: 064
  5. GABAPENTIN. [Suspect]
     Active Substance: GABAPENTIN
     Route: 064
  6. METHADONE [Suspect]
     Active Substance: METHADONE HYDROCHLORIDE
     Indication: FOETAL EXPOSURE DURING PREGNANCY
     Route: 064
  7. ZOPICLONE [Suspect]
     Active Substance: ZOPICLONE
     Indication: FOETAL EXPOSURE DURING PREGNANCY
     Dosage: DOSE AND FREQUENCY UNKNOWN
     Route: 064
  8. GABAPENTIN. [Suspect]
     Active Substance: GABAPENTIN
     Indication: FOETAL EXPOSURE DURING PREGNANCY
     Dosage: DOSE AND FREQUENCY UNKNOWN
     Route: 064
  9. RABEPRAZOLE [Suspect]
     Active Substance: RABEPRAZOLE
     Indication: FOETAL EXPOSURE DURING PREGNANCY
     Dosage: DOSE AND FREQUENCY UNKNOWN
     Route: 064
  10. NORTRIPTYLINE [Suspect]
     Active Substance: NORTRIPTYLINE
     Route: 064
  11. ESCITALOPRAM [Suspect]
     Active Substance: ESCITALOPRAM OXALATE
     Indication: FOETAL EXPOSURE DURING PREGNANCY
     Dosage: DOSE AND FREQUENCY UNKNOWN
     Route: 064
  12. BENZATROPINE MESILATE [Suspect]
     Active Substance: BENZTROPINE
     Dosage: PMS?BENZTROPINE ? BRAND
     Route: 064
  13. QUETIAPINE. [Suspect]
     Active Substance: QUETIAPINE
     Route: 064

REACTIONS (8)
  - Trismus [Recovered/Resolved]
  - Sleep disorder [Recovered/Resolved]
  - Tremor [Recovered/Resolved]
  - Crying [Recovered/Resolved]
  - Drug withdrawal syndrome neonatal [Recovered/Resolved]
  - Premature baby [Recovered/Resolved]
  - Muscle tone disorder [Recovered/Resolved]
  - Foetal exposure during pregnancy [Recovered/Resolved]
